FAERS Safety Report 5238650-5 (Version None)
Quarter: 2007Q1

REPORT INFORMATION
  Report Type: 
  Country: None (occurrence: None)
  Receive Date: 20070214
  Receipt Date: 20070214
  Transmission Date: 20070707
  Serious: Yes (Hospitalization)
  Sender: FDA-Public Use
  Company Number: None

PATIENT
  Age: 81 Year
  Sex: Male
  Weight: 91.2 kg

DRUGS (11)
  1. CIPROFLOXACIN [Suspect]
     Indication: URINARY TRACT INFECTION
     Dosage: 500 MG X 1
     Dates: start: 20061023
  2. RANITIDINE HCL [Concomitant]
  3. FORMOTEROL FUMARATE [Concomitant]
  4. POTASSIUM CHLORIDE [Concomitant]
  5. LISINOPRIL [Concomitant]
  6. LEVALBUTEROL TART [Concomitant]
  7. ACETAMINOPHEN [Concomitant]
  8. ALBUTEROL 90 / IPRATROP 18 MCG [Concomitant]
  9. HYDROCHLOROTHIAZIDE [Concomitant]
  10. HYDROCORTISONE CREAM [Concomitant]
  11. KETOCONAZOLE [Concomitant]

REACTIONS (3)
  - EXTRASYSTOLES [None]
  - HEART RATE IRREGULAR [None]
  - VENTRICULAR EXTRASYSTOLES [None]
